FAERS Safety Report 24883662 (Version 1)
Quarter: 2025Q1

REPORT INFORMATION
  Report Type: Spontaneous
  Country: FR (occurrence: FR)
  Receive Date: 20250124
  Receipt Date: 20250124
  Transmission Date: 20250409
  Serious: Yes (Hospitalization)
  Sender: PFIZER
  Company Number: FR-PFIZER INC-PV202500008271

PATIENT
  Age: 10 Year
  Sex: Female
  Weight: 64 kg

DRUGS (18)
  1. LORLATINIB [Suspect]
     Active Substance: LORLATINIB
     Indication: Neuroblastoma
     Dosage: 125 MG, 1X/DAY
     Dates: start: 20211206
  2. LORLATINIB [Suspect]
     Active Substance: LORLATINIB
     Indication: Metastases to lung
     Dosage: 135 MG, 1X/DAY
     Dates: start: 20220131
  3. LORLATINIB [Suspect]
     Active Substance: LORLATINIB
     Indication: Anaplastic lymphoma kinase gene mutation
     Dosage: 140 MG, 1X/DAY
     Dates: start: 20220228
  4. LORLATINIB [Suspect]
     Active Substance: LORLATINIB
     Dosage: 145 MG, 1X/DAY
     Dates: start: 20220328
  5. LORLATINIB [Suspect]
     Active Substance: LORLATINIB
     Dosage: 145 MG, 1X/DAY
     Dates: start: 20220425
  6. LORLATINIB [Suspect]
     Active Substance: LORLATINIB
     Dosage: 150 MG, 1X/DAY
     Dates: start: 20220523
  7. LORLATINIB [Suspect]
     Active Substance: LORLATINIB
     Dosage: 155 MG, 1X/DAY
     Dates: start: 20220816
  8. LORLATINIB [Suspect]
     Active Substance: LORLATINIB
     Dosage: 160 MG, 1X/DAY
     Dates: start: 20220912
  9. LORLATINIB [Suspect]
     Active Substance: LORLATINIB
     Dosage: 165 MG, 1X/DAY
     Dates: start: 20221205
  10. LORLATINIB [Suspect]
     Active Substance: LORLATINIB
     Dosage: 150 MG, 1X/DAY
     Dates: start: 20221231, end: 20230104
  11. LORLATINIB [Suspect]
     Active Substance: LORLATINIB
     Dosage: 150 MG, 1X/DAY
     Dates: start: 20230204, end: 20230302
  12. LORLATINIB [Suspect]
     Active Substance: LORLATINIB
     Dosage: 175 MG, 1X/DAY
     Dates: start: 20240105
  13. LORLATINIB [Suspect]
     Active Substance: LORLATINIB
     Dosage: 200 MG, 1X/DAY
     Dates: start: 20240926
  14. TOPOTECAN HYDROCHLORIDE [Suspect]
     Active Substance: TOPOTECAN HYDROCHLORIDE
     Indication: Neuroblastoma
  15. TOPOTECAN HYDROCHLORIDE [Suspect]
     Active Substance: TOPOTECAN HYDROCHLORIDE
     Indication: Metastases to lung
  16. CYCLOPHOSPHAMIDE [Suspect]
     Active Substance: CYCLOPHOSPHAMIDE
     Indication: Neuroblastoma
  17. CYCLOPHOSPHAMIDE [Suspect]
     Active Substance: CYCLOPHOSPHAMIDE
     Indication: Metastases to lung
  18. CYCLOPHOSPHAMIDE [Suspect]
     Active Substance: CYCLOPHOSPHAMIDE
     Indication: Anaplastic lymphoma kinase gene mutation

REACTIONS (7)
  - Infection [Recovered/Resolved]
  - Blood cholesterol abnormal [Unknown]
  - Blood triglycerides abnormal [Unknown]
  - Neoplasm recurrence [Unknown]
  - COVID-19 [Unknown]
  - Off label use [Unknown]
  - Off label use [Unknown]

NARRATIVE: CASE EVENT DATE: 20211206
